FAERS Safety Report 24608363 (Version 1)
Quarter: 2024Q4

REPORT INFORMATION
  Report Type: Spontaneous
  Country: GB (occurrence: GB)
  Receive Date: 20241112
  Receipt Date: 20241112
  Transmission Date: 20250114
  Serious: Yes (Death, Other)
  Sender: MERCK
  Company Number: GB-009507513-2411GBR003405

PATIENT
  Age: 6 Decade
  Sex: Male

DRUGS (1)
  1. KEYTRUDA [Suspect]
     Active Substance: PEMBROLIZUMAB
     Indication: Renal cell carcinoma
     Dosage: 400 MILLIGRAM, EVERY 6 WEEKS

REACTIONS (2)
  - Immune-mediated enterocolitis [Fatal]
  - Large intestine perforation [Fatal]
